FAERS Safety Report 10290463 (Version 1)
Quarter: 2014Q3

REPORT INFORMATION
  Report Type: Spontaneous
  Country: US (occurrence: None)
  Receive Date: 20140707
  Receipt Date: 20140707
  Transmission Date: 20150326
  Serious: No
  Sender: FDA-Public Use
  Company Number: None

PATIENT
  Age: 62 Year
  Sex: Female
  Weight: 68.04 kg

DRUGS (2)
  1. RANEXA [Suspect]
     Active Substance: RANOLAZINE
     Indication: CHEST PAIN
     Dosage: 452271   TWICE DAILY TAKEN BY MOUTH
     Route: 048
     Dates: start: 20140616, end: 20140629
  2. RANEXA [Suspect]
     Active Substance: RANOLAZINE
     Dosage: 452271   TWICE DAILY TAKEN BY MOUTH
     Route: 048
     Dates: start: 20140616, end: 20140629

REACTIONS (1)
  - Oliguria [None]

NARRATIVE: CASE EVENT DATE: 20020628
